FAERS Safety Report 5602642-4 (Version None)
Quarter: 2008Q1

REPORT INFORMATION
  Report Type: 
  Country: None (occurrence: None)
  Receive Date: 20080125
  Receipt Date: 20080122
  Transmission Date: 20080703
  Serious: Yes (Death, Other)
  Sender: FDA-Public Use
  Company Number: FR-BRISTOL-MYERS SQUIBB COMPANY-14049308

PATIENT
  Age: 84 Year
  Sex: Female

DRUGS (4)
  1. OXACILLIN SODIUM [Suspect]
     Indication: INFECTION
  2. AMIKACIN SULFATE [Suspect]
     Indication: INFECTION
  3. HEXATRIONE [Suspect]
     Indication: ARTHRITIS
  4. VORICONAZOLE [Suspect]

REACTIONS (3)
  - ARTHRITIS INFECTIVE [None]
  - ASPERGILLOSIS [None]
  - MULTI-ORGAN FAILURE [None]
